FAERS Safety Report 10813519 (Version 2)
Quarter: 2015Q1

REPORT INFORMATION
  Report Type: Spontaneous
  Country: US (occurrence: US)
  Receive Date: 20150218
  Receipt Date: 20150325
  Transmission Date: 20150721
  Serious: No
  Sender: FDA-Public Use
  Company Number: US-PFIZER INC-2015060536

PATIENT
  Age: 80 Year
  Sex: Female

DRUGS (4)
  1. DARVOCET [Suspect]
     Active Substance: ACETAMINOPHEN\PROPOXYPHENE HYDROCHLORIDE
     Dosage: UNK
  2. CLEOCIN [Suspect]
     Active Substance: CLINDAMYCIN PHOSPHATE
     Dosage: UNK
  3. BIAXIN [Suspect]
     Active Substance: CLARITHROMYCIN
     Dosage: UNK
  4. DARVON [Suspect]
     Active Substance: PROPOXYPHENE HYDROCHLORIDE
     Dosage: UNK

REACTIONS (4)
  - Nausea [Unknown]
  - Headache [Unknown]
  - Abdominal pain [Unknown]
  - Vomiting [Unknown]
